FAERS Safety Report 4718633-1 (Version None)
Quarter: 2005Q3

REPORT INFORMATION
  Report Type: 
  Country: None (occurrence: None)
  Receive Date: 20050720
  Receipt Date: 20050708
  Transmission Date: 20060218
  Serious: Yes (Hospitalization)
  Sender: FDA-Public Use
  Company Number: FI-GLAXOSMITHKLINE-B0387454A

PATIENT
  Age: 59 Year
  Sex: Male

DRUGS (8)
  1. ZINACEF [Suspect]
     Indication: PROPHYLAXIS
     Route: 042
     Dates: start: 20050518, end: 20050518
  2. NIMED [Suspect]
     Indication: PAIN
     Route: 048
     Dates: start: 20050518, end: 20050522
  3. BURANA [Suspect]
     Indication: PAIN
     Dosage: 2400MG PER DAY
     Route: 048
     Dates: start: 20050523, end: 20050530
  4. ACETAMINOPHEN W/ CODEINE [Suspect]
     Indication: DRUG USE FOR UNKNOWN INDICATION
     Route: 048
     Dates: start: 20050518, end: 20050518
  5. BISOPROLOL [Concomitant]
     Indication: ARRHYTHMIA
     Dosage: 5MG PER DAY
     Route: 048
  6. ENOXAPARIN SODIUM [Concomitant]
     Route: 058
     Dates: start: 20050518, end: 20050608
  7. LEVOFLOXACIN [Concomitant]
     Indication: HIP SURGERY
  8. HYDROCORTISONE + OXYTETRACYCLINE + POLYMIXIN B SULPHATE [Concomitant]
     Indication: EYE DISORDER
     Route: 061

REACTIONS (19)
  - ALANINE AMINOTRANSFERASE INCREASED [None]
  - BLISTER [None]
  - CONJUNCTIVITIS [None]
  - CORNEAL DISORDER [None]
  - ECZEMA [None]
  - ERYTHEMA [None]
  - ERYTHEMA MULTIFORME [None]
  - KERATITIS [None]
  - LIP ULCERATION [None]
  - MEAN CELL VOLUME INCREASED [None]
  - MONOCYTE COUNT INCREASED [None]
  - MOUTH ULCERATION [None]
  - MUCOUS MEMBRANE DISORDER [None]
  - OCULAR HYPERAEMIA [None]
  - PAIN [None]
  - RASH MACULAR [None]
  - SCAB [None]
  - SKIN ULCER [None]
  - STEVENS-JOHNSON SYNDROME [None]
